FAERS Safety Report 16824648 (Version 2)
Quarter: 2019Q4

REPORT INFORMATION
  Report Type: Spontaneous
  Country: US (occurrence: US)
  Receive Date: 20190918
  Receipt Date: 20191021
  Transmission Date: 20200122
  Serious: No
  Sender: FDA-Public Use
  Company Number: US-BIOMARINAP-US-2019-125641

PATIENT

DRUGS (1)
  1. VIMIZIM [Suspect]
     Active Substance: ELOSULFASE ALFA
     Indication: MUCOPOLYSACCHARIDOSIS IV
     Dosage: UNK, QW
     Route: 042
     Dates: start: 20151001

REACTIONS (6)
  - Insomnia [Unknown]
  - Tinea capitis [Unknown]
  - Skin lesion [Unknown]
  - Feeling abnormal [Unknown]
  - Somnolence [Unknown]
  - Confusional state [Unknown]
